FAERS Safety Report 6974795-7 (Version None)
Quarter: 2010Q3

REPORT INFORMATION
  Report Type: 
  Country: None (occurrence: None)
  Receive Date: 20100909
  Receipt Date: 20081216
  Transmission Date: 20110219
  Serious: No
  Sender: FDA-Public Use
  Company Number: US-WYE-H07343508

PATIENT
  Sex: Male
  Weight: 72.64 kg

DRUGS (2)
  1. PRISTIQ [Suspect]
     Indication: NERVOUSNESS
     Route: 048
     Dates: start: 20081111, end: 20081211
  2. PRISTIQ [Suspect]
     Route: 048
     Dates: start: 20081215

REACTIONS (9)
  - ABDOMINAL DISCOMFORT [None]
  - DEPRESSION [None]
  - DIZZINESS [None]
  - DRUG WITHDRAWAL SYNDROME [None]
  - FEELING ABNORMAL [None]
  - HEADACHE [None]
  - INFLUENZA LIKE ILLNESS [None]
  - PAIN [None]
  - VOMITING [None]
